FAERS Safety Report 7064933-2 (Version None)
Quarter: 2010Q4

REPORT INFORMATION
  Report Type: 
  Country: None (occurrence: None)
  Receive Date: 20101027
  Receipt Date: 19920422
  Transmission Date: 20110411
  Serious: Yes (Death, Life-Threatening, Hospitalization)
  Sender: FDA-Public Use
  Company Number: DE-ROCHE-920317964001

PATIENT
  Sex: Male
  Weight: 92 kg

DRUGS (7)
  1. NAPROSYN [Suspect]
     Route: 048
  2. MARCUMAR [Interacting]
     Route: 048
     Dates: end: 19901222
  3. GLYBURIDE [Concomitant]
     Indication: DIABETES MELLITUS
     Route: 048
  4. LOPIRIN 25 [Concomitant]
     Route: 048
  5. LASIX [Concomitant]
     Route: 048
  6. CATAPRESAN [Concomitant]
     Route: 048
  7. NITROGLYCERIN [Concomitant]
     Route: 055

REACTIONS (5)
  - CHEST PAIN [None]
  - CIRCULATORY COLLAPSE [None]
  - DYSPNOEA [None]
  - PROTHROMBIN TIME PROLONGED [None]
  - ULCER HAEMORRHAGE [None]
